FAERS Safety Report 18769445 (Version 1)
Quarter: 2021Q1

REPORT INFORMATION
  Report Type: Report from Study
  Country: PA (occurrence: PA)
  Receive Date: 20210121
  Receipt Date: 20210121
  Transmission Date: 20210419
  Serious: Yes (Other)
  Sender: FDA-Public Use
  Company Number: NVSC2021PA011602

PATIENT
  Age: 76 Year
  Sex: Female

DRUGS (1)
  1. GALVUS MET [Suspect]
     Active Substance: METFORMIN HYDROCHLORIDE\VILDAGLIPTIN
     Indication: BLOOD GLUCOSE INCREASED
     Dosage: 1 DF (2 MONTHS AGO) (50/850 MG)
     Route: 065

REACTIONS (3)
  - Dementia Alzheimer^s type [Unknown]
  - Ischaemia [Unknown]
  - General physical health deterioration [Unknown]
